FAERS Safety Report 9178108 (Version 1)
Quarter: 2013Q1

REPORT INFORMATION
  Report Type: Spontaneous
  Country: US (occurrence: US)
  Receive Date: 20130321
  Receipt Date: 20130321
  Transmission Date: 20140127
  Serious: No
  Sender: FDA-Public Use
  Company Number: US-PFIZER INC-2013092255

PATIENT
  Age: 39 Year
  Sex: Male
  Weight: 74.83 kg

DRUGS (2)
  1. LYRICA [Suspect]
     Indication: FIBROMYALGIA
     Dosage: 75 MG, 1X/DAY
     Dates: start: 20130315
  2. TRAMADOL [Concomitant]
     Indication: PAIN
     Dosage: UNK, AS NEEDED

REACTIONS (2)
  - Testicular disorder [Not Recovered/Not Resolved]
  - Paraesthesia oral [Not Recovered/Not Resolved]
